FAERS Safety Report 4655091-X (Version None)
Quarter: 2005Q2

REPORT INFORMATION
  Report Type: 
  Country: None (occurrence: None)
  Receive Date: 20050503
  Receipt Date: 20050216
  Transmission Date: 20051028
  Serious: Yes (Death)
  Sender: FDA-Public Use
  Company Number: 2005AP02512

PATIENT
  Age: 62 Year
  Sex: Male
  Weight: 45.5 kg

DRUGS (20)
  1. MEROPEN [Suspect]
     Indication: CELLULITIS
     Dosage: 0.5 G BID IVD
     Route: 042
     Dates: start: 20041119, end: 20041120
  2. BROACT [Suspect]
     Indication: CELLULITIS
     Dosage: 1 G DAILY IVD
     Route: 042
     Dates: start: 20041118, end: 20041118
  3. BROACT [Suspect]
     Indication: CELLULITIS
     Dosage: 0.5 G DAILY IVD
     Route: 042
     Dates: start: 20041119, end: 20041119
  4. SEDIEL [Suspect]
     Indication: PRURITUS
     Dosage: 10 MG TID PO
     Route: 048
     Dates: start: 20041118, end: 20041119
  5. CLINORIL [Concomitant]
  6. CALCIUM CARBONATE [Concomitant]
  7. BAYASPIRIN [Concomitant]
  8. PROTECADIN [Concomitant]
  9. INDERAL LA [Concomitant]
  10. MUCOSTA [Concomitant]
  11. JUVELA NICOTINATE [Concomitant]
  12. BLOPRESS [Concomitant]
  13. ARGAMATE [Concomitant]
  14. HUMULIN 70/30 [Concomitant]
  15. PERIACTIN [Concomitant]
  16. NITROPEN [Concomitant]
  17. MYSER [Concomitant]
  18. EURAX ^CIBA-GEIGY^ [Concomitant]
  19. PROSTANDIN [Concomitant]
  20. ISODINE [Concomitant]

REACTIONS (9)
  - AGITATION [None]
  - BLOOD PRESSURE DECREASED [None]
  - COMA HEPATIC [None]
  - CONDITION AGGRAVATED [None]
  - DISSEMINATED INTRAVASCULAR COAGULATION [None]
  - HEPATIC FAILURE [None]
  - HEPATITIS FULMINANT [None]
  - HYPOGLYCAEMIA [None]
  - PNEUMONIA [None]
